FAERS Safety Report 10579092 (Version 9)
Quarter: 2015Q4

REPORT INFORMATION
  Report Type: Report from Study
  Country: US (occurrence: US)
  Receive Date: 20141112
  Receipt Date: 20151020
  Transmission Date: 20160304
  Serious: Yes (Hospitalization, Other)
  Sender: FDA-Public Use
  Company Number: US-SA-2013SA107945

PATIENT
  Age: 59 Year
  Sex: Male

DRUGS (3)
  1. AMIODARONE [Concomitant]
     Active Substance: AMIODARONE
  2. AUBAGIO [Suspect]
     Active Substance: TERIFLUNOMIDE
     Indication: MULTIPLE SCLEROSIS
     Route: 048
     Dates: start: 20130503, end: 20140522
  3. AUBAGIO [Suspect]
     Active Substance: TERIFLUNOMIDE
     Indication: MULTIPLE SCLEROSIS
     Route: 048
     Dates: start: 20150815

REACTIONS (14)
  - Stress [Recovering/Resolving]
  - Cognitive disorder [Unknown]
  - Trichorrhexis [Unknown]
  - Decreased activity [Recovering/Resolving]
  - Multiple sclerosis relapse [Recovered/Resolved]
  - Alopecia [Unknown]
  - Depressed mood [Unknown]
  - Cardiac failure [Unknown]
  - Thinking abnormal [Unknown]
  - Muscular weakness [Unknown]
  - Arrhythmia [Recovering/Resolving]
  - Myocardial infarction [Unknown]
  - Hair colour changes [Unknown]
  - Drug dose omission [Unknown]

NARRATIVE: CASE EVENT DATE: 20140428
